FAERS Safety Report 19561135 (Version 1)
Quarter: 2021Q3

REPORT INFORMATION
  Report Type: Other
  Country: CA (occurrence: CA)
  Receive Date: 20210716
  Receipt Date: 20210716
  Transmission Date: 20211014
  Serious: Yes (Other)
  Sender: FDA-Public Use
  Company Number: CA-CELLTRION INC.-2021CA009337

PATIENT

DRUGS (14)
  1. PREDNISONE. [Suspect]
     Active Substance: PREDNISONE
     Indication: INFLAMMATORY PSEUDOTUMOUR
     Dosage: 20 MG, 1 EVERY 1 DAY
     Route: 065
  2. RITUXIMAB (UNKNOWN) [Suspect]
     Active Substance: RITUXIMAB
     Indication: VASCULITIS
     Dosage: 711 MG, 1 EVERY 1 WEEK
     Route: 042
  3. TYLENOL [Concomitant]
     Active Substance: ACETAMINOPHEN
     Dosage: 600 MG
     Route: 048
  4. VITAMIN B2 [Concomitant]
     Active Substance: RIBOFLAVIN
  5. ADVIL [Concomitant]
     Active Substance: IBUPROFEN
  6. FROVATRIPTAN. [Concomitant]
     Active Substance: FROVATRIPTAN
     Indication: MIGRAINE
     Dosage: 2.5 MG
     Route: 065
  7. SEPTRA [Concomitant]
     Active Substance: SULFAMETHOXAZOLE\TRIMETHOPRIM
     Indication: ANTIFUNGAL PROPHYLAXIS
     Dosage: 3 EVERY 1 DAY
     Route: 065
  8. RITUXIMAB (UNKNOWN) [Suspect]
     Active Substance: RITUXIMAB
     Indication: INFLAMMATORY PSEUDOTUMOUR
     Dosage: 711 MG, 1 EVERY 1 WEEK
     Route: 042
  9. BENADRYL [Concomitant]
     Active Substance: DIPHENHYDRAMINE HYDROCHLORIDE
     Indication: PREMEDICATION
     Dosage: 50 MG
     Route: 048
  10. DROSPIRENONE/ETHINYLESTRADIOL [Concomitant]
     Active Substance: DROSPIRENONE\ETHINYL ESTRADIOL
  11. VERAPAMIL [Concomitant]
     Active Substance: VERAPAMIL HYDROCHLORIDE
     Dosage: 120 MG, 3 EVERY 1 DAY
     Route: 065
  12. MYCOPHENOLATE MOFETIL. [Suspect]
     Active Substance: MYCOPHENOLATE MOFETIL
     Indication: INFLAMMATORY PSEUDOTUMOUR
     Dosage: 1 GRAM, 2 EVERY 1 DAY
     Route: 048
  13. AMITRIPTYLINE [Concomitant]
     Active Substance: AMITRIPTYLINE
     Dosage: 50 MG, 1 EVERY 1 DAY
     Route: 065
  14. METHYLPREDNISOLONE SODIUM SUCCINATE. [Concomitant]
     Active Substance: METHYLPREDNISOLONE SODIUM SUCCINATE
     Indication: ANTIFUNGAL PROPHYLAXIS
     Dosage: 100 MG
     Route: 042

REACTIONS (12)
  - Eye swelling [Recovered/Resolved]
  - Heart rate increased [Recovered/Resolved]
  - Infusion related reaction [Recovered/Resolved]
  - Eye haemorrhage [Recovered/Resolved]
  - Off label use [Unknown]
  - Blood pressure diastolic increased [Recovered/Resolved]
  - Eye inflammation [Recovered/Resolved]
  - Off label use [Recovered/Resolved]
  - Diplopia [Recovered/Resolved]
  - Intentional product use issue [Recovered/Resolved]
  - Eye pain [Recovered/Resolved]
  - Blood pressure fluctuation [Recovered/Resolved]
